FAERS Safety Report 9406169 (Version 2)
Quarter: 2013Q3

REPORT INFORMATION
  Report Type: Spontaneous
  Country: US (occurrence: US)
  Receive Date: 20130717
  Receipt Date: 20130805
  Transmission Date: 20140515
  Serious: Yes (Hospitalization, Other)
  Sender: FDA-Public Use
  Company Number: US-VERTEX PHARMACEUTICALS INC-2013-007952

PATIENT
  Age: 51 Year
  Sex: Male
  Weight: 57 kg

DRUGS (11)
  1. INCIVEK [Suspect]
     Indication: HEPATITIS C
     Dosage: 750 MG, TID
     Route: 048
     Dates: start: 20130501, end: 20130504
  2. INCIVEK [Suspect]
     Dosage: 750 MG, TID
     Route: 048
     Dates: start: 20130524, end: 20130527
  3. RIBAVIRIN [Suspect]
     Indication: HEPATITIS C
     Dosage: 600 MG AM, 400 MG PM, BID
     Dates: start: 20130501, end: 20130504
  4. RIBAVIRIN [Suspect]
     Dosage: 600 MG AM, 400 MG PM, BID
     Dates: start: 20130524, end: 20130527
  5. PEGASYS [Suspect]
     Indication: HEPATITIS C
     Dosage: UNK
     Dates: start: 20130501, end: 20130504
  6. PEGASYS [Suspect]
     Dosage: 180 ?G, QW
     Route: 058
     Dates: start: 20130524, end: 20130527
  7. SERTRALINE [Concomitant]
  8. ZOFRAN [Concomitant]
  9. OMEPRAZOLE [Concomitant]
  10. IMODIUM [Concomitant]
  11. LISINOPRIL [Concomitant]

REACTIONS (4)
  - Pneumococcal sepsis [Recovered/Resolved]
  - Abdominal pain [Recovered/Resolved]
  - Obstruction gastric [Unknown]
  - Vomiting [Recovered/Resolved]
